FAERS Safety Report 20407534 (Version 4)
Quarter: 2022Q4

REPORT INFORMATION
  Report Type: Spontaneous
  Country: CO (occurrence: CO)
  Receive Date: 20220131
  Receipt Date: 20221130
  Transmission Date: 20230112
  Serious: Yes (Other)
  Sender: FDA-Public Use
  Company Number: CO-PFIZER INC-202200092395

PATIENT
  Age: 33 Year
  Sex: Male

DRUGS (2)
  1. ENBREL [Suspect]
     Active Substance: ETANERCEPT
     Indication: Ankylosing spondylitis
     Dosage: 50 MILLIGRAM
     Route: 058
  2. ENBREL [Suspect]
     Active Substance: ETANERCEPT
     Dosage: 50 MILLIGRAM, EVERY 8 DAYS
     Route: 058
     Dates: start: 20211130

REACTIONS (7)
  - Osteoarthritis [Not Recovered/Not Resolved]
  - Hip arthroplasty [Unknown]
  - Joint injury [Unknown]
  - Limb discomfort [Unknown]
  - Joint stiffness [Unknown]
  - Hypokinesia [Unknown]
  - Pain [Unknown]

NARRATIVE: CASE EVENT DATE: 20220601
